FAERS Safety Report 8082263-7 (Version None)
Quarter: 2012Q1

REPORT INFORMATION
  Report Type: 
  Country: None (occurrence: None)
  Receive Date: 20120127
  Receipt Date: 20110215
  Transmission Date: 20120608
  Serious: No
  Sender: FDA-Public Use
  Company Number: US-ABBOTT-11P-163-0705366-00

PATIENT
  Sex: Female
  Weight: 102.15 kg

DRUGS (9)
  1. SYNTHROID [Concomitant]
     Indication: HYPOTHYROIDISM
  2. ARICEPT [Concomitant]
     Indication: DEMENTIA
  3. LEVOCARBIDOPA [Concomitant]
     Indication: PARKINSON'S DISEASE
  4. NAMENDA [Concomitant]
     Indication: DEMENTIA
  5. IMIPRAMINE HCL [Concomitant]
     Indication: DEPRESSION
  6. LORAZEPAM [Concomitant]
     Indication: DEPRESSION
  7. LITHIUM CARBONATE [Concomitant]
     Indication: DEPRESSION
  8. HUMIRA [Suspect]
     Indication: PSORIASIS
     Dates: start: 20080101
  9. JENUMET [Concomitant]
     Indication: DIABETES MELLITUS

REACTIONS (1)
  - FEELING ABNORMAL [None]
